FAERS Safety Report 12013865 (Version 1)
Quarter: 2016Q1

REPORT INFORMATION
  Report Type: Spontaneous
  Country: US (occurrence: US)
  Receive Date: 20160205
  Receipt Date: 20160205
  Transmission Date: 20160526
  Serious: No
  Sender: FDA-Public Use
  Company Number: US-AMGEN-USASP2015058242

PATIENT

DRUGS (5)
  1. NEULASTA [Suspect]
     Active Substance: PEGFILGRASTIM
     Indication: CHRONIC KIDNEY DISEASE
     Dosage: UNK UNK, UNK
     Route: 065
  2. NEULASTA [Suspect]
     Active Substance: PEGFILGRASTIM
     Indication: PLASMACYTOMA
  3. NEULASTA [Suspect]
     Active Substance: PEGFILGRASTIM
     Indication: NEPHROGENIC ANAEMIA
  4. NEULASTA [Suspect]
     Active Substance: PEGFILGRASTIM
     Indication: ANAEMIA
  5. NEULASTA [Suspect]
     Active Substance: PEGFILGRASTIM
     Indication: ANAEMIA OF CHRONIC DISEASE

REACTIONS (1)
  - Off label use [Unknown]
